FAERS Safety Report 4850495-4 (Version None)
Quarter: 2005Q4

REPORT INFORMATION
  Report Type: 
  Country: None (occurrence: None)
  Receive Date: 20051125
  Receipt Date: 20050323
  Transmission Date: 20060501
  Serious: Yes (Other)
  Sender: FDA-Public Use
  Company Number: HQWYE622401APR05

PATIENT
  Age: 64 Year
  Sex: Female
  Weight: 56.75 kg

DRUGS (1)
  1. PREMARIN [Suspect]
     Indication: MENOPAUSAL SYMPTOMS
     Dosage: ONE APPLICATION TWICE WEEKLY, VAGINAL
     Route: 067
     Dates: start: 20010801, end: 20020201

REACTIONS (3)
  - ABDOMINAL PAIN [None]
  - BACK PAIN [None]
  - ENDOMETRIAL DISORDER [None]
